FAERS Safety Report 4809860-3 (Version None)
Quarter: 2005Q4

REPORT INFORMATION
  Report Type: 
  Country: None (occurrence: None)
  Receive Date: 20051024
  Receipt Date: 20051010
  Transmission Date: 20060501
  Serious: Yes (Other)
  Sender: FDA-Public Use
  Company Number: 2004033027

PATIENT
  Age: 57 Year
  Sex: Male
  Weight: 109.7705 kg

DRUGS (6)
  1. NEURONTIN [Suspect]
     Indication: NEURALGIA
     Dosage: 4500 MG
     Dates: end: 20050101
  2. TEGRETOL [Suspect]
     Indication: NEUROPATHY
     Dosage: 300 MG (100 MG, 3 IN 1 D), ORAL
     Route: 048
     Dates: start: 20040101, end: 20040101
  3. GABAPENTIN [Suspect]
     Indication: NEUROPATHY
     Dosage: ORAL
     Route: 048
     Dates: start: 20050101
  4. PRILOSEC [Concomitant]
  5. COLACE (DOCUSATE SODIUM) [Concomitant]
  6. VALIUM [Concomitant]

REACTIONS (21)
  - ABDOMINAL PAIN UPPER [None]
  - AMNESIA [None]
  - ASTHMA [None]
  - BLISTER [None]
  - BRONCHITIS [None]
  - CONDITION AGGRAVATED [None]
  - CONSTIPATION [None]
  - CONVULSION [None]
  - DIARRHOEA [None]
  - DRUG ADMINISTRATION ERROR [None]
  - DRUG INEFFECTIVE [None]
  - DRY EYE [None]
  - EXERCISE LACK OF [None]
  - HAEMORRHOIDS [None]
  - HYPERSENSITIVITY [None]
  - IRRITABLE BOWEL SYNDROME [None]
  - MUSCLE SPASMS [None]
  - PARAESTHESIA [None]
  - URINARY RETENTION [None]
  - URINARY TRACT DISORDER [None]
  - WEIGHT INCREASED [None]
